FAERS Safety Report 18373659 (Version 1)
Quarter: 2020Q4

REPORT INFORMATION
  Report Type: Spontaneous
  Country: US (occurrence: US)
  Receive Date: 20201012
  Receipt Date: 20201012
  Transmission Date: 20210114
  Serious: Yes (Other)
  Sender: FDA-Public Use
  Company Number: US-PFIZER INC-2003000360

PATIENT
  Age: 21 Year
  Sex: Male

DRUGS (8)
  1. PHENYTOIN. [Interacting]
     Active Substance: PHENYTOIN
     Dosage: 350 MG, DAILY (150MG IN THE MORNING AND 200MG IN THE EVENING)
  2. PHENYTOIN. [Suspect]
     Active Substance: PHENYTOIN
     Indication: SEIZURE
     Dosage: 200 MG, BID
     Route: 065
  3. CARBAMAZEPINE. [Concomitant]
     Active Substance: CARBAMAZEPINE
     Dosage: 200 MG, TWICE DAILY
     Route: 065
  4. ISRADIPINE. [Interacting]
     Active Substance: ISRADIPINE
     Dosage: 7.5 MG, DAILY (2.5MG IN THE MORNING AND 5MG IN THE EVENING )
  5. ISRADIPINE. [Interacting]
     Active Substance: ISRADIPINE
     Dosage: 2.5 MG, 2X/DAY
  6. ACCUPRIL [Suspect]
     Active Substance: QUINAPRIL HYDROCHLORIDE
     Dosage: 10 MG, ONCE DAILY
     Route: 065
  7. CARNITINE [Concomitant]
     Active Substance: CARNITINE
     Dosage: 30 MG/KG, TWICE DAILY
     Route: 065
  8. ISRADIPINE. [Interacting]
     Active Substance: ISRADIPINE
     Indication: HYPERTENSION
     Dosage: 2.5 MG, 1X/DAY
     Route: 065

REACTIONS (3)
  - Drug interaction [Recovered/Resolved]
  - Hypertension [Recovered/Resolved]
  - Neurotoxicity [Recovered/Resolved]
